FAERS Safety Report 6173249-8 (Version None)
Quarter: 2009Q2

REPORT INFORMATION
  Report Type: 
  Country: None (occurrence: None)
  Receive Date: 20090428
  Receipt Date: 20090415
  Transmission Date: 20091009
  Serious: Yes (Hospitalization)
  Sender: FDA-Public Use
  Company Number: 2009AL002206

PATIENT
  Age: 4 Year
  Sex: Male

DRUGS (2)
  1. PHENOBARBITAL TAB [Suspect]
     Indication: GRAND MAL CONVULSION
  2. VALPROATE SODIUM [Concomitant]

REACTIONS (3)
  - HEPATIC FAILURE [None]
  - OCULAR VASCULAR DISORDER [None]
  - REYE'S SYNDROME [None]
